FAERS Safety Report 10370513 (Version 1)
Quarter: 2014Q1

REPORT INFORMATION
  Report Type: Spontaneous
  Country: US (occurrence: None)
  Receive Date: 20140306
  Receipt Date: 20140306
  Transmission Date: 20141002
  Serious: Yes (Other)
  Sender: FDA-Public Use
  Company Number: 163-21880-13094012

PATIENT
  Age: 56 Year
  Sex: Male

DRUGS (12)
  1. REVLIMID [Suspect]
     Indication: PLASMA CELL MYELOMA
     Dosage: 25 MG, 21 IN 28 D, PO
     Route: 048
     Dates: start: 20130329
  2. LASIX (FUROSEMIDE) (TABLETS) [Concomitant]
  3. PROTEIN (PLASMA PROTEIN FRACTION (HUMAN) [Concomitant]
  4. COLACE (DOCUSATE SODIUM) (CAPSULES) [Concomitant]
  5. MULTIVITAMINS (MULTIVITAMINS) (CAPSULES) [Concomitant]
  6. KRILL OIL (OMEGA-3 FATTY ACIDS) (CAPSULES) [Concomitant]
  7. XARELTO (RIVAROXABAN) (TABLETS) [Concomitant]
  8. POTASSIUM CHLORIDE MICRO (POTASSIUM CHLORIDE) (SUSTAINED-RELEASE TABLET) [Concomitant]
  9. PREDNISONE (PREDNISONE) (TABLETS) [Concomitant]
  10. METOLAZONE (METOLAZONE) (TABLETS) [Concomitant]
  11. OMEGA-3 (OMEGA-3 TRIGLYCERIDES) (CAPSULES) [Concomitant]
  12. VELCADE (BORTEZOMIB) (INJECTION) [Concomitant]

REACTIONS (5)
  - Amyloidosis [None]
  - Arthralgia [None]
  - Fatigue [None]
  - Local swelling [None]
  - Neuropathy peripheral [None]
